FAERS Safety Report 8003415-8 (Version None)
Quarter: 2011Q4

REPORT INFORMATION
  Report Type: 
  Country: None (occurrence: None)
  Receive Date: 20111222
  Receipt Date: 20111214
  Transmission Date: 20120403
  Serious: Yes (Hospitalization)
  Sender: FDA-Public Use
  Company Number: US-ABBOTT-11P-163-0883268-00

PATIENT
  Sex: Male
  Weight: 74.91 kg

DRUGS (11)
  1. TERAZOSIN HCL [Concomitant]
     Indication: BENIGN PROSTATIC HYPERPLASIA
  2. ASPIRIN [Concomitant]
     Indication: HEADACHE
  3. UNNAMED SINUS MEDICATION [Concomitant]
     Indication: PRODUCT USED FOR UNKNOWN INDICATION
  4. HUMIRA [Suspect]
     Indication: RHEUMATOID ARTHRITIS
     Dates: start: 20100101, end: 20111001
  5. CYMBALTA [Concomitant]
     Indication: PAIN
  6. HUMIRA [Suspect]
     Dates: start: 20111201
  7. ATENOLOL [Concomitant]
     Indication: HYPERTENSION
  8. NEURONTIN [Concomitant]
     Indication: NEUROPATHY PERIPHERAL
  9. MELOXICAM [Concomitant]
     Indication: OSTEOARTHRITIS
  10. AMBIEN [Concomitant]
     Indication: SLEEP DISORDER THERAPY
  11. CYMBALTA [Concomitant]
     Indication: DEPRESSION

REACTIONS (11)
  - ARTHRALGIA [None]
  - ARTHRITIS [None]
  - DRUG INEFFECTIVE [None]
  - HAEMOTHORAX [None]
  - NEUROPATHY PERIPHERAL [None]
  - OEDEMA PERIPHERAL [None]
  - RIB FRACTURE [None]
  - PAIN [None]
  - MUSCULOSKELETAL STIFFNESS [None]
  - MUSCULOSKELETAL CHEST PAIN [None]
  - FALL [None]
